FAERS Safety Report 7206841-X (Version None)
Quarter: 2011Q1

REPORT INFORMATION
  Report Type: 
  Country: None (occurrence: None)
  Receive Date: 20110103
  Receipt Date: 20101221
  Transmission Date: 20110831
  Serious: Yes (Hospitalization)
  Sender: FDA-Public Use
  Company Number: B0691457A

PATIENT
  Sex: Female
  Weight: 90 kg

DRUGS (5)
  1. ALLI [Suspect]
     Indication: WEIGHT DECREASED
     Dosage: 60MG UNKNOWN
     Route: 048
     Dates: start: 20101011, end: 20101111
  2. KIVEXA [Concomitant]
     Indication: HIV INFECTION
  3. DIETARY SUPPLEMENT [Suspect]
     Indication: NUTRITIONAL SUPPORT
     Dosage: 2000MG THREE TIMES PER DAY
     Route: 048
     Dates: start: 20101011, end: 20101111
  4. HERBAL MEDICATION [Suspect]
     Indication: PHYTOTHERAPY
     Dosage: 3MG PER DAY
     Route: 048
     Dates: start: 20101011, end: 20101111
  5. STOCRIN [Concomitant]
     Indication: HIV INFECTION

REACTIONS (10)
  - URINE ABNORMALITY [None]
  - CHROMATURIA [None]
  - NAUSEA [None]
  - HAEMOLYSIS [None]
  - DIZZINESS [None]
  - HEADACHE [None]
  - ANAEMIA [None]
  - OVERDOSE [None]
  - BLOOD BILIRUBIN INCREASED [None]
  - BLOOD LACTATE DEHYDROGENASE INCREASED [None]
